FAERS Safety Report 4708366-X (Version None)
Quarter: 2005Q3

REPORT INFORMATION
  Report Type: 
  Country: None (occurrence: None)
  Receive Date: 20050706
  Receipt Date: 20050624
  Transmission Date: 20060218
  Serious: Yes (Hospitalization)
  Sender: FDA-Public Use
  Company Number: KII-2005-0017246

PATIENT
  Age: 20 Month
  Sex: Male

DRUGS (19)
  1. OXYCODONE HCL [Suspect]
     Dosage: ORAL
     Route: 048
  2. THEOPHYLLINE [Suspect]
     Dosage: ORAL
     Route: 048
  3. POTASSIUM CHLORIDE [Suspect]
     Dosage: ORAL
     Route: 048
  4. METHADONE HCL [Suspect]
     Dosage: ORAL
     Route: 048
  5. FUROSEMIDE [Suspect]
     Dosage: ORAL
     Route: 048
  6. LOVASTATIN [Suspect]
     Dosage: ORAL
     Route: 048
  7. OMEPRAZOLE [Suspect]
     Dosage: ORAL
     Route: 048
  8. GLIPIZIDE [Suspect]
     Dosage: ORAL
     Route: 048
  9. PROMETHAZINE [Suspect]
  10. CLONAZEPAM [Concomitant]
     Dosage: ORAL
     Route: 048
  11. GEMFIBROZIL [Suspect]
     Dosage: ORAL
     Route: 048
  12. LISINOPRIL [Suspect]
     Dosage: ORAL
     Route: 048
  13. HYOSCYAMINE (HYOSCYAMINE) [Suspect]
     Dosage: ORAL
     Route: 048
  14. FOLIC ACID [Suspect]
     Dosage: ORAL
     Route: 048
  15. BISACODYL (BISACODYL) [Suspect]
     Dosage: ORAL
     Route: 048
  16. METOCLOPRAMIDE [Suspect]
  17. PREDNISONE [Concomitant]
  18. SILDENAFIL CITRATE [Suspect]
     Dosage: ORAL
     Route: 048
  19. TRAZODONE (TRAZODONE) [Suspect]
     Dosage: ORAL
     Route: 048

REACTIONS (4)
  - ACCIDENTAL EXPOSURE [None]
  - AGITATION [None]
  - SOMNOLENCE [None]
  - VOMITING [None]
